FAERS Safety Report 8385669-1 (Version None)
Quarter: 2012Q2

REPORT INFORMATION
  Report Type: 
  Country: None (occurrence: None)
  Receive Date: 20120523
  Receipt Date: 20120523
  Transmission Date: 20120825
  Serious: Yes (Life-Threatening, Hospitalization, Disabling)
  Sender: FDA-Public Use
  Company Number: None

PATIENT
  Age: 77 Year
  Sex: Female
  Weight: 54.5 kg

DRUGS (1)
  1. OXYTROL [Suspect]
     Indication: STRESS URINARY INCONTINENCE
     Dosage: 1-3.9MG PATCH TWICE WEEKLY TRANSDERMAL
     Route: 062
     Dates: start: 20120205, end: 20120214

REACTIONS (8)
  - ABDOMINAL PAIN UPPER [None]
  - ATRIAL FIBRILLATION [None]
  - DYSPNOEA EXERTIONAL [None]
  - CHEST PAIN [None]
  - PALPITATIONS [None]
  - URINARY RETENTION [None]
  - DYSPNOEA [None]
  - HEART RATE INCREASED [None]
